FAERS Safety Report 21734899 (Version 1)
Quarter: 2022Q4

REPORT INFORMATION
  Report Type: Spontaneous
  Country: US (occurrence: US)
  Receive Date: 20221215
  Receipt Date: 20221215
  Transmission Date: 20230113
  Serious: No
  Sender: FDA-Public Use
  Company Number: US-ALLERGAN-2223915US

PATIENT
  Sex: Female
  Weight: 40.37 kg

DRUGS (1)
  1. PREDNISOLONE ACETATE [Suspect]
     Active Substance: PREDNISOLONE ACETATE
     Indication: Post procedural inflammation
     Dosage: ONE DROP IN A TITRATED DOSE AT 4, 3 AND 2
     Route: 047
     Dates: end: 20220716

REACTIONS (7)
  - Ocular discomfort [Not Recovered/Not Resolved]
  - Superficial injury of eye [Unknown]
  - Heart rate increased [Unknown]
  - Dizziness [Unknown]
  - Feeling abnormal [Unknown]
  - Hypersensitivity [Unknown]
  - Headache [Not Recovered/Not Resolved]
